FAERS Safety Report 4679431-0 (Version None)
Quarter: 2005Q2

REPORT INFORMATION
  Report Type: 
  Country: None (occurrence: None)
  Receive Date: 20050602
  Receipt Date: 20041006
  Transmission Date: 20051028
  Serious: Yes (Death)
  Sender: FDA-Public Use
  Company Number: 2004AP05122

PATIENT
  Age: 55 Year
  Sex: Female

DRUGS (1)
  1. ARIMIDEX [Suspect]
     Indication: BREAST CANCER
     Route: 048

REACTIONS (9)
  - CARDIOMEGALY [None]
  - CHEST X-RAY ABNORMAL [None]
  - COMPUTERISED TOMOGRAM ABNORMAL [None]
  - DYSPNOEA EXERTIONAL [None]
  - EMBOLISM [None]
  - GENERAL PHYSICAL HEALTH DETERIORATION [None]
  - HYPOGLOSSAL NERVE DISORDER [None]
  - PULMONARY FIBROSIS [None]
  - VIIITH NERVE LESION [None]
